FAERS Safety Report 12626863 (Version 1)
Quarter: 2016Q3

REPORT INFORMATION
  Report Type: Spontaneous
  Country: GB (occurrence: GB)
  Receive Date: 20160805
  Receipt Date: 20160805
  Transmission Date: 20161109
  Serious: Yes (Other)
  Sender: FDA-Public Use
  Company Number: GB-PFIZER INC-2016366407

PATIENT
  Age: 5 Decade
  Sex: Male
  Weight: 72.4 kg

DRUGS (7)
  1. GRANISETRON [Concomitant]
     Active Substance: GRANISETRON
     Dosage: UNK
  2. IRINOTECAN HCL [Suspect]
     Active Substance: IRINOTECAN HYDROCHLORIDE
     Indication: ENDOMETRIAL ADENOCARCINOMA
     Dosage: 775 MG, UNK
     Route: 042
     Dates: start: 20160718, end: 20160718
  3. OMEPRAZOLE /00661202/ [Concomitant]
     Dosage: UNK
  4. DEXAMETHASONE. [Concomitant]
     Active Substance: DEXAMETHASONE
     Dosage: UNK
  5. OXALIPLATIN. [Concomitant]
     Active Substance: OXALIPLATIN
     Dosage: UNK
  6. 5 FLUOROURACIL /00098801/ [Concomitant]
     Active Substance: FLUOROURACIL
     Dosage: UNK
  7. IBUPROFEN. [Concomitant]
     Active Substance: IBUPROFEN
     Dosage: UNK

REACTIONS (5)
  - Aphonia [Recovered/Resolved]
  - Dyspnoea [Recovered/Resolved]
  - Dysphonia [Recovered/Resolved]
  - Throat tightness [Recovered/Resolved]
  - Anaphylactic reaction [Recovered/Resolved]

NARRATIVE: CASE EVENT DATE: 20160718
